FAERS Safety Report 7556377-1 (Version None)
Quarter: 2011Q2

REPORT INFORMATION
  Report Type: 
  Country: None (occurrence: None)
  Receive Date: 20110620
  Receipt Date: 20110607
  Transmission Date: 20111010
  Serious: Yes (Hospitalization, Other)
  Sender: FDA-Public Use
  Company Number: IE-ELI_LILLY_AND_COMPANY-IE201105003768

PATIENT
  Sex: Female

DRUGS (22)
  1. BUMETANIDE [Concomitant]
  2. ACETAMINOPHEN [Concomitant]
  3. CIPROFLOXACIN [Concomitant]
  4. CELLCEPT [Concomitant]
  5. LEUCOVORIN CALCIUM [Concomitant]
  6. GAVISCON                           /00237601/ [Concomitant]
  7. VORICONAZOLE [Concomitant]
  8. GABAPENTIN [Concomitant]
  9. CITALOPRAM HYDROBROMIDE [Concomitant]
  10. ZOLPIDEM [Concomitant]
  11. LIDOCAINE [Concomitant]
  12. AMITRIPTYLINE HYDROCHLORIDE [Concomitant]
  13. OCUVITE LUTEIN [Concomitant]
  14. FORTEO [Suspect]
     Indication: OSTEOPOROSIS
     Dosage: 20 UG, UNK
     Dates: start: 20110509
  15. ALPRAZOLAM [Concomitant]
  16. SEPTRA [Concomitant]
  17. OMACOR [Concomitant]
  18. AZITHROMYCIN [Concomitant]
  19. DELTACORTRIL [Concomitant]
  20. MYCOSTATIN [Concomitant]
  21. DOMPERIDONE [Concomitant]
  22. PREDNISOLONE [Concomitant]

REACTIONS (9)
  - FRACTURED COCCYX [None]
  - BLOOD PRESSURE INCREASED [None]
  - HEADACHE [None]
  - FALL [None]
  - LOWER RESPIRATORY TRACT INFECTION [None]
  - HEAD INJURY [None]
  - BLOOD PRESSURE INADEQUATELY CONTROLLED [None]
  - GAIT DISTURBANCE [None]
  - LUNG TRANSPLANT [None]
